FAERS Safety Report 5092370-9 (Version None)
Quarter: 2006Q3

REPORT INFORMATION
  Report Type: 
  Country: None (occurrence: None)
  Receive Date: 20060825
  Receipt Date: 20060807
  Transmission Date: 20061208
  Serious: Yes (Hospitalization)
  Sender: FDA-Public Use
  Company Number: US200607001068

PATIENT
  Age: 32 Year
  Sex: Male
  Weight: 156.5 kg

DRUGS (2)
  1. ZYPREXA [Suspect]
     Indication: SCHIZOPHRENIA, PARANOID TYPE
     Dates: start: 19980901, end: 20050601
  2. SEROQUEL [Concomitant]

REACTIONS (6)
  - ANGINA UNSTABLE [None]
  - BLOOD CHOLESTEROL INCREASED [None]
  - BLOOD TRIGLYCERIDES INCREASED [None]
  - DIABETES MELLITUS INSULIN-DEPENDENT [None]
  - OBESITY [None]
  - TACHYCARDIA [None]
